FAERS Safety Report 13776984 (Version 1)
Quarter: 2017Q3

REPORT INFORMATION
  Report Type: Other
  Country: GB (occurrence: GB)
  Receive Date: 20170721
  Receipt Date: 20170721
  Transmission Date: 20171127
  Serious: Yes (Other)
  Sender: FDA-Public Use
  Company Number: GB-PERRIGO-17GB025169

PATIENT

DRUGS (2)
  1. XTANDI [Suspect]
     Active Substance: ENZALUTAMIDE
     Indication: PRODUCT USED FOR UNKNOWN INDICATION
     Dosage: 40 MG, UNK
     Route: 065
  2. LOPERAMIDE HYDROCHLORIDE. [Suspect]
     Active Substance: LOPERAMIDE HYDROCHLORIDE
     Indication: PRODUCT USED FOR UNKNOWN INDICATION
     Dosage: 2 MG, UNK
     Route: 048

REACTIONS (6)
  - Pollakiuria [Unknown]
  - Drug ineffective [Unknown]
  - Asthenia [Unknown]
  - Mobility decreased [Unknown]
  - Tumour pain [Unknown]
  - Muscle atrophy [Unknown]
